FAERS Safety Report 6241455-X (Version None)
Quarter: 2009Q2

REPORT INFORMATION
  Report Type: 
  Country: None (occurrence: None)
  Receive Date: 20090623
  Receipt Date: 20030826
  Transmission Date: 20091009
  Serious: Yes (Hospitalization)
  Sender: FDA-Public Use
  Company Number: BR-ROCHE-340895

PATIENT
  Sex: Female
  Weight: 70.2 kg

DRUGS (25)
  1. DACLIZUMAB [Suspect]
     Route: 042
     Dates: start: 20030528
  2. DACLIZUMAB [Suspect]
     Route: 042
     Dates: start: 20030612
  3. MYCOPHENOLATE MOFETIL [Suspect]
     Route: 048
     Dates: start: 20030528, end: 20030621
  4. SIROLIMUS [Suspect]
     Route: 048
     Dates: start: 20030528
  5. SIROLIMUS [Suspect]
     Route: 048
     Dates: start: 20030531
  6. SIROLIMUS [Suspect]
     Route: 048
     Dates: start: 20030606
  7. TACROLIMUS [Suspect]
     Route: 048
     Dates: start: 20030729
  8. TACROLIMUS [Suspect]
     Route: 048
     Dates: start: 20030805
  9. TACROLIMUS [Suspect]
     Route: 048
     Dates: start: 20031009
  10. METHYLPREDNISOLONE [Suspect]
     Route: 042
     Dates: start: 20030528
  11. PREDNISONE [Suspect]
     Route: 048
     Dates: start: 20030528
  12. PREDNISONE [Suspect]
     Route: 048
     Dates: start: 20030531
  13. IMIPENEM [Concomitant]
     Route: 042
     Dates: start: 20030620
  14. PROPRANOLOL HYDROCHLORIDE [Concomitant]
     Route: 048
     Dates: start: 20030529
  15. PROPRANOLOL HYDROCHLORIDE [Concomitant]
     Route: 048
     Dates: start: 20030601
  16. MINOXIDIL [Concomitant]
     Route: 048
     Dates: start: 20030616
  17. OMEPRAZOLE [Concomitant]
     Route: 042
     Dates: start: 20030530
  18. CLONIDINE [Concomitant]
     Route: 048
     Dates: start: 20030516
  19. CLONIDINE [Concomitant]
     Route: 048
     Dates: start: 20030609
  20. AZATHIOPRINE [Concomitant]
     Route: 048
     Dates: start: 20030627
  21. AZATHIOPRINE [Concomitant]
     Dosage: FORM REPORTED AS DRAG
     Route: 048
     Dates: start: 20030811
  22. AZATHIOPRINE [Concomitant]
     Dosage: FORM REPORTED AS DRAG
     Route: 048
     Dates: start: 20030827
  23. HYDRALAZINE HCL [Concomitant]
     Dosage: THERAPY START DATE REPORTED AS 31 JUNE 2003
     Route: 048
     Dates: start: 20030601
  24. METHYLDOPA [Concomitant]
     Route: 048
     Dates: start: 20030603
  25. SULFAMETHOXAZOLE AND TRIMETHOPRIM [Concomitant]
     Route: 048
     Dates: start: 20030529, end: 20031211

REACTIONS (1)
  - PANCYTOPENIA [None]
